FAERS Safety Report 9007585 (Version 2)
Quarter: 2013Q2

REPORT INFORMATION
  Report Type: Spontaneous
  Country: US (occurrence: US)
  Receive Date: 20130111
  Receipt Date: 20130405
  Transmission Date: 20140414
  Serious: Yes (Hospitalization)
  Sender: FDA-Public Use
  Company Number: US-BIOGENIDEC-2013BI002008

PATIENT
  Age: 41 Year
  Sex: Female

DRUGS (1)
  1. TYSABRI [Suspect]
     Indication: MULTIPLE SCLEROSIS
     Route: 042
     Dates: start: 20080213

REACTIONS (7)
  - Tumour excision [Recovered/Resolved]
  - Hysterectomy [Recovered/Resolved]
  - Asthenia [Unknown]
  - Blood iron decreased [Unknown]
  - Vaginal haemorrhage [Recovered/Resolved]
  - Rectal haemorrhage [Unknown]
  - Uterine leiomyoma [Recovered/Resolved]
